FAERS Safety Report 15790557 (Version 1)
Quarter: 2019Q1

REPORT INFORMATION
  Report Type: Spontaneous
  Country: GB (occurrence: GB)
  Receive Date: 20190104
  Receipt Date: 20190104
  Transmission Date: 20190417
  Serious: Yes (Other)
  Sender: FDA-Public Use
  Company Number: GB-SAMSUNG BIOEPIS-SB-2018-17375

PATIENT
  Age: 37 Year
  Sex: Female

DRUGS (1)
  1. INFLIXIMAB [Suspect]
     Active Substance: INFLIXIMAB
     Indication: PRODUCT USED FOR UNKNOWN INDICATION
     Dosage: 3RD DOSE
     Route: 042
     Dates: start: 20180220, end: 20180220

REACTIONS (9)
  - Coma scale abnormal [Unknown]
  - Fatigue [Unknown]
  - Yawning [Unknown]
  - Agitation [Unknown]
  - Feeling hot [Unknown]
  - Malaise [Unknown]
  - Oculogyric crisis [Unknown]
  - Confusional state [Unknown]
  - Dizziness [Unknown]

NARRATIVE: CASE EVENT DATE: 20180220
